FAERS Safety Report 19119867 (Version 3)
Quarter: 2021Q2

REPORT INFORMATION
  Report Type: Report from Study
  Country: US (occurrence: US)
  Receive Date: 20210412
  Receipt Date: 20210525
  Transmission Date: 20210717
  Serious: No
  Sender: FDA-Public Use
  Company Number: US-GW PHARMA-202103USGW01390

PATIENT

DRUGS (1)
  1. EPIDIOLEX [Suspect]
     Active Substance: CANNABIDIOL
     Indication: LENNOX-GASTAUT SYNDROME
     Dosage: 16.86 MG/KG/DAY, 1300 MILLIGRAM, QD (TIME TAKING EPIDIOLEX: 6 YEARS 6 MONTHS)
     Route: 048
     Dates: start: 2014

REACTIONS (1)
  - Therapy responder [Unknown]
